FAERS Safety Report 21415625 (Version 2)
Quarter: 2022Q4

REPORT INFORMATION
  Report Type: Report from Study
  Country: TW (occurrence: None)
  Receive Date: 20221006
  Receipt Date: 20221020
  Transmission Date: 20230113
  Serious: Yes (Hospitalization)
  Sender: FDA-Public Use
  Company Number: TW-ROCHE-3189300

PATIENT
  Age: 48 Year
  Sex: Female
  Weight: 63.5 kg

DRUGS (5)
  1. ZANUBRUTINIB [Suspect]
     Active Substance: ZANUBRUTINIB
     Indication: Follicular lymphoma
     Dosage: ON 27/SEP/2022, SHE RECEIVED THE LAST DOSE PRIOR TO SAE.
     Route: 048
     Dates: start: 20191016, end: 20220927
  2. OBINUTUZUMAB [Suspect]
     Active Substance: OBINUTUZUMAB
     Indication: Follicular lymphoma
     Dosage: ON 07/JAN/2022, SHE RECEIVED THE LAST DOSE PRIOR TO SAE
     Route: 042
     Dates: start: 20191016, end: 20220107
  3. METFORMIN [Concomitant]
     Active Substance: METFORMIN HYDROCHLORIDE
  4. SITAGLIPTIN [Concomitant]
     Active Substance: SITAGLIPTIN
  5. POTASSIUM GLUCONATE [Concomitant]
     Active Substance: POTASSIUM GLUCONATE

REACTIONS (2)
  - Pneumonia [Not Recovered/Not Resolved]
  - COVID-19 [Recovered/Resolved]

NARRATIVE: CASE EVENT DATE: 20220906
